FAERS Safety Report 12373949 (Version 1)
Quarter: 2016Q2

REPORT INFORMATION
  Report Type: Spontaneous
  Country: GB (occurrence: GB)
  Receive Date: 20160517
  Receipt Date: 20160517
  Transmission Date: 20160815
  Serious: Yes (Hospitalization)
  Sender: FDA-Public Use
  Company Number: GB-DEXPHARM-20161048

PATIENT
  Age: 67 Year
  Sex: Male
  Weight: 63.7 kg

DRUGS (11)
  1. PARACETAMOL [Concomitant]
     Active Substance: ACETAMINOPHEN
  2. CLENIL MODULITE [Concomitant]
     Active Substance: BECLOMETHASONE DIPROPIONATE
  3. OMEPRAZOLE. [Suspect]
     Active Substance: OMEPRAZOLE
     Dosage: DAILY DOSE: 20 MG MILLGRAM(S) EVERY DAYS
     Route: 048
     Dates: end: 20160430
  4. LOSARTAN. [Concomitant]
     Active Substance: LOSARTAN
  5. DOXAZOSIN [Concomitant]
     Active Substance: DOXAZOSIN\DOXAZOSIN MESYLATE
  6. FELODIPINE. [Concomitant]
     Active Substance: FELODIPINE
  7. SIMVASTATIN. [Concomitant]
     Active Substance: SIMVASTATIN
  8. OLANZAPINE. [Suspect]
     Active Substance: OLANZAPINE
     Indication: SCHIZOPHRENIA
     Dosage: DAILY DOSE: 15 MG MILLGRAM(S) EVERY DAYS
     Route: 048
  9. BECONASE AQ [Concomitant]
     Active Substance: BECLOMETHASONE DIPROPIONATE MONOHYDRATE
  10. NICOTINE. [Concomitant]
     Active Substance: NICOTINE
  11. SALBUTAMOL [Concomitant]
     Active Substance: ALBUTEROL

REACTIONS (6)
  - Tremor [Unknown]
  - Dyspnoea [Unknown]
  - Feeling abnormal [Unknown]
  - Dizziness [Unknown]
  - Hyponatraemia [Recovering/Resolving]
  - Palpitations [Unknown]

NARRATIVE: CASE EVENT DATE: 20160430
